FAERS Safety Report 7208387-1 (Version None)
Quarter: 2010Q4

REPORT INFORMATION
  Report Type: 
  Country: None (occurrence: None)
  Receive Date: 20101230
  Receipt Date: 20101230
  Transmission Date: 20110411
  Serious: Yes (Life-Threatening, Disabling, Other)
  Sender: FDA-Public Use
  Company Number: None

PATIENT
  Age: 59 Year
  Sex: Female
  Weight: 83.9154 kg

DRUGS (1)
  1. RECLAST [Suspect]
     Indication: OSTEOPOROSIS PROPHYLAXIS
     Dosage: 5CC 1 IV PER YEAR IV
     Route: 042

REACTIONS (4)
  - ARTHRALGIA [None]
  - OSTEONECROSIS [None]
  - PAIN IN EXTREMITY [None]
  - TOOTH DISORDER [None]
